FAERS Safety Report 6167415-5 (Version None)
Quarter: 2009Q2

REPORT INFORMATION
  Report Type: 
  Country: None (occurrence: None)
  Receive Date: 20090424
  Receipt Date: 20090416
  Transmission Date: 20091009
  Serious: Yes (Hospitalization, Disabling, Other)
  Sender: FDA-Public Use
  Company Number: PHHY2009CA13638

PATIENT
  Sex: Female

DRUGS (6)
  1. FEMARA [Suspect]
     Indication: BREAST CANCER
     Dosage: 2.5 MG, QD
     Route: 048
     Dates: start: 20051001
  2. HYDRODIURIL [Concomitant]
  3. LOPRESSOR [Concomitant]
  4. ENTROPHEN [Concomitant]
  5. CALCIUM [Concomitant]
  6. CLONIDINE [Concomitant]

REACTIONS (3)
  - DERMATOMYOSITIS [None]
  - GENERAL PHYSICAL HEALTH DETERIORATION [None]
  - WEIGHT DECREASED [None]
